FAERS Safety Report 6272875-5 (Version None)
Quarter: 2009Q3

REPORT INFORMATION
  Report Type: 
  Country: None (occurrence: None)
  Receive Date: 20090717
  Receipt Date: 20090409
  Transmission Date: 20100115
  Serious: Yes (Hospitalization)
  Sender: FDA-Public Use
  Company Number: FR-GENENTECH-281196

PATIENT
  Sex: Female

DRUGS (7)
  1. BEVACIZUMAB [Suspect]
     Indication: BREAST CANCER
     Dosage: 780 MG, Q3W
     Route: 042
     Dates: start: 20081219
  2. TRASTUZUMAB [Suspect]
     Indication: BREAST CANCER
     Dosage: 312 MG, Q3W
     Route: 042
     Dates: start: 20081219
  3. DOCETAXEL [Suspect]
     Indication: BREAST CANCER
     Dosage: 195 MG, Q3W
     Route: 042
     Dates: start: 20081219
  4. LEVOTHYROX [Concomitant]
     Indication: DRUG USE FOR UNKNOWN INDICATION
     Dosage: UNK
  5. RIVOTRIL [Concomitant]
     Indication: DRUG USE FOR UNKNOWN INDICATION
     Dosage: UNK
     Dates: start: 20090112
  6. VALIUM [Concomitant]
     Indication: DRUG USE FOR UNKNOWN INDICATION
     Dosage: UNK
     Dates: start: 20090202
  7. PRAZEPAM [Concomitant]
     Indication: DRUG USE FOR UNKNOWN INDICATION
     Dosage: UNK
     Dates: start: 20081215

REACTIONS (1)
  - METASTASES TO MENINGES [None]
